FAERS Safety Report 7126312-9 (Version None)
Quarter: 2010Q4

REPORT INFORMATION
  Report Type: 
  Country: None (occurrence: None)
  Receive Date: 20101129
  Receipt Date: 20100210
  Transmission Date: 20110411
  Serious: No
  Sender: FDA-Public Use
  Company Number: A0844581A

PATIENT
  Age: 60 Year
  Sex: Male

DRUGS (7)
  1. DIGOXIN [Suspect]
     Indication: HEART RATE IRREGULAR
     Route: 048
     Dates: start: 20091101
  2. MULTAQ [Suspect]
     Indication: HEART RATE IRREGULAR
     Dosage: 400MG TWICE PER DAY
     Route: 048
     Dates: start: 20091201, end: 20091230
  3. PERCOCET [Concomitant]
  4. RESTORIL [Concomitant]
  5. NEXIUM [Concomitant]
  6. VYTORIN [Concomitant]
  7. PROAMATINE [Concomitant]

REACTIONS (10)
  - ASTHENIA [None]
  - CHEST PAIN [None]
  - CONFUSIONAL STATE [None]
  - DIZZINESS [None]
  - GASTROOESOPHAGEAL REFLUX DISEASE [None]
  - MUSCULAR WEAKNESS [None]
  - MUSCULOSKELETAL CHEST PAIN [None]
  - NECK PAIN [None]
  - PAIN IN EXTREMITY [None]
  - PALPITATIONS [None]
